FAERS Safety Report 7402420-X (Version None)
Quarter: 2011Q2

REPORT INFORMATION
  Report Type: 
  Country: None (occurrence: None)
  Receive Date: 20110408
  Receipt Date: 20110404
  Transmission Date: 20111010
  Serious: Yes (Other)
  Sender: FDA-Public Use
  Company Number: RU-BRISTOL-MYERS SQUIBB COMPANY-15651722

PATIENT
  Age: 59 Year
  Sex: Female

DRUGS (8)
  1. TORSEMIDE [Concomitant]
     Indication: HYPERTENSION
     Dates: start: 20101020
  2. PACLITAXEL [Suspect]
     Indication: NON-SMALL CELL LUNG CANCER
     Route: 042
     Dates: start: 20100826, end: 20101123
  3. METOPROLOL [Concomitant]
     Indication: HYPERTENSION
     Route: 048
     Dates: start: 20100915
  4. LEVOTHYROXINE SODIUM [Concomitant]
     Indication: THYROIDECTOMY
     Dates: start: 20100920
  5. NIFEDIPINE [Concomitant]
     Indication: HYPERTENSION
     Dates: start: 20101115, end: 20101125
  6. CAPTOPRIL [Concomitant]
     Indication: HYPERTENSION
     Dosage: 15MG:2005-21SEP10(5YR),7.5 MG:22SEP10-ONG
     Dates: start: 20050101
  7. CARBOPLATIN [Suspect]
     Indication: NON-SMALL CELL LUNG CANCER
     Dosage: 1 DF= 6AUC:26AUG10-26AUG2010,5AUC:27SEP10-23NOV10(57DAYS).
     Route: 042
     Dates: start: 20100826, end: 20101123
  8. RABEPRAZOLE SODIUM [Concomitant]
     Indication: GASTRITIS HAEMORRHAGIC
     Dates: start: 20101001

REACTIONS (1)
  - HYPERTENSIVE CRISIS [None]
